FAERS Safety Report 15113873 (Version 1)
Quarter: 2018Q2

REPORT INFORMATION
  Report Type: Spontaneous
  Country: US (occurrence: US)
  Receive Date: 20180612
  Receipt Date: 20180612
  Transmission Date: 20180711
  Serious: Yes (Other)
  Sender: FDA-Public Use
  Company Number: None

PATIENT
  Age: 66 Year
  Sex: Male
  Weight: 65 kg

DRUGS (15)
  1. LISINOPRIL. [Concomitant]
     Active Substance: LISINOPRIL
  2. MAGNESIUM [Concomitant]
     Active Substance: MAGNESIUM
  3. TRADJENTA [Concomitant]
     Active Substance: LINAGLIPTIN
  4. PREDNISONE. [Concomitant]
     Active Substance: PREDNISONE
  5. SENNA LAXATIVE [Concomitant]
     Active Substance: SENNOSIDES
  6. PANTOPRAZOLE [Concomitant]
     Active Substance: PANTOPRAZOLE
  7. INLYTA [Suspect]
     Active Substance: AXITINIB
     Indication: CHRONIC LYMPHOCYTIC LEUKAEMIA
     Route: 048
     Dates: start: 20180607
  8. PROTONIX [Concomitant]
     Active Substance: PANTOPRAZOLE SODIUM
  9. METFORMIN [Concomitant]
     Active Substance: METFORMIN HYDROCHLORIDE
  10. MEGESTROL [Concomitant]
     Active Substance: MEGESTROL
  11. MELATONIN [Concomitant]
     Active Substance: MELATONIN
  12. NYSTATIN. [Concomitant]
     Active Substance: NYSTATIN
  13. ZANTAC [Concomitant]
     Active Substance: RANITIDINE HYDROCHLORIDE
  14. PHOSPHOROUS [Concomitant]
  15. SODIUM [Concomitant]
     Active Substance: SODIUM

REACTIONS (1)
  - Nausea [None]
